FAERS Safety Report 24989173 (Version 1)
Quarter: 2025Q1

REPORT INFORMATION
  Report Type: Other
  Country: US (occurrence: US)
  Receive Date: 20250220
  Receipt Date: 20250220
  Transmission Date: 20250408
  Serious: Yes (Other)
  Sender: ALVOGEN
  Company Number: US-ALVOGEN-2025096289

PATIENT
  Age: 56 Year
  Sex: Female

DRUGS (3)
  1. FENTANYL [Suspect]
     Active Substance: FENTANYL
     Indication: Product used for unknown indication
  2. METHAMPHETAMINE [Suspect]
     Active Substance: METHAMPHETAMINE
     Indication: Product used for unknown indication
  3. COCAINE [Suspect]
     Active Substance: COCAINE
     Indication: Product used for unknown indication

REACTIONS (2)
  - Delusion of parasitosis [Unknown]
  - Substance abuse [Unknown]
